FAERS Safety Report 23629525 (Version 2)
Quarter: 2024Q2

REPORT INFORMATION
  Report Type: Spontaneous
  Country: JP (occurrence: JP)
  Receive Date: 20240314
  Receipt Date: 20240404
  Transmission Date: 20240716
  Serious: Yes (Hospitalization)
  Sender: FDA-Public Use
  Company Number: JP-JNJFOC-20240336507

PATIENT
  Age: 6 Decade
  Sex: Male

DRUGS (13)
  1. RISPERDAL [Suspect]
     Active Substance: RISPERIDONE
     Indication: Product used for unknown indication
     Dosage: DOSE UNKNOWN
     Route: 048
  2. RISPERDAL [Suspect]
     Active Substance: RISPERIDONE
     Dosage: DOSE UNKNOWNGRADUALLY INCREASED
     Route: 048
  3. RISPERDAL [Suspect]
     Active Substance: RISPERIDONE
     Dosage: P.R.N2 TIMES
     Route: 048
     Dates: start: 202402, end: 202402
  4. RISPERDAL [Suspect]
     Active Substance: RISPERIDONE
     Dosage: P.R.NONCE
     Route: 048
     Dates: start: 202402, end: 202402
  5. RISPERDAL [Suspect]
     Active Substance: RISPERIDONE
     Dosage: P.R.NONCE
     Route: 048
     Dates: start: 202402, end: 202402
  6. RISPERIDONE [Suspect]
     Active Substance: RISPERIDONE
     Indication: Product used for unknown indication
     Dosage: DOSE UNKNOWN
     Route: 048
  7. RISPERIDONE [Suspect]
     Active Substance: RISPERIDONE
     Dosage: DOSE UNKNOWNGRADUALLY INCREASED
     Route: 048
  8. RISPERIDONE [Suspect]
     Active Substance: RISPERIDONE
     Dosage: P.R.N2 TIMES
     Route: 048
     Dates: start: 202402, end: 202402
  9. RISPERIDONE [Suspect]
     Active Substance: RISPERIDONE
     Dosage: P.R.NONCE
     Route: 048
     Dates: start: 202402, end: 202402
  10. RISPERIDONE [Suspect]
     Active Substance: RISPERIDONE
     Dosage: P.R.NONCE
     Route: 048
     Dates: start: 202402, end: 202402
  11. OLANZAPINE [Concomitant]
     Active Substance: OLANZAPINE
     Dosage: DOSE UNKNOWN
     Route: 048
  12. OLANZAPINE [Concomitant]
     Active Substance: OLANZAPINE
     Dosage: DOSE UNKNOWNGRADUALLY DECREASED
     Route: 048
  13. OLANZAPINE [Concomitant]
     Active Substance: OLANZAPINE
     Route: 048

REACTIONS (3)
  - Hospitalisation [Unknown]
  - Refusal of treatment by patient [Unknown]
  - Off label use [Unknown]

NARRATIVE: CASE EVENT DATE: 20240201
